FAERS Safety Report 8225958-4 (Version None)
Quarter: 2012Q1

REPORT INFORMATION
  Report Type: 
  Country: None (occurrence: None)
  Receive Date: 20120321
  Receipt Date: 20120312
  Transmission Date: 20120608
  Serious: Yes (Other)
  Sender: FDA-Public Use
  Company Number: PHHY2012SE023001

PATIENT
  Age: 58 Year
  Sex: Female

DRUGS (9)
  1. SIMVASTATIN [Concomitant]
  2. VALPROIC ACID [Concomitant]
  3. CLOZARIL [Suspect]
     Route: 048
  4. ENALAPRIL [Concomitant]
  5. ABILIFY [Concomitant]
  6. CLOZAPINE [Suspect]
     Route: 048
  7. CLOZAPINE [Suspect]
     Route: 048
  8. AMLODIPINE [Concomitant]
  9. METFORMIN HCL [Concomitant]

REACTIONS (5)
  - DEPRESSED MOOD [None]
  - SOCIAL AVOIDANT BEHAVIOUR [None]
  - BLOOD PRESSURE INCREASED [None]
  - DIABETES MELLITUS [None]
  - DECREASED ACTIVITY [None]
